FAERS Safety Report 7152326-9 (Version None)
Quarter: 2010Q4

REPORT INFORMATION
  Report Type: 
  Country: None (occurrence: None)
  Receive Date: 20101209
  Receipt Date: 20101209
  Transmission Date: 20110411
  Serious: Yes (Other)
  Sender: FDA-Public Use
  Company Number: None

PATIENT
  Age: 76 Year
  Sex: Female
  Weight: 48.9885 kg

DRUGS (8)
  1. TEKTURNA [Suspect]
     Indication: HYPERTENSION
     Dosage: 150 MG AM  75 MG PM
     Dates: start: 20090101
  2. BENICAR [Concomitant]
  3. MICARDIS [Concomitant]
  4. NORVASAN [Concomitant]
  5. DIOVAN [Concomitant]
  6. ALTACE [Concomitant]
  7. ATACAND [Concomitant]
  8. CLONIDINE [Concomitant]

REACTIONS (2)
  - ALOPECIA [None]
  - MADAROSIS [None]
